FAERS Safety Report 23949816 (Version 1)
Quarter: 2024Q2

REPORT INFORMATION
  Report Type: Spontaneous
  Country: CN (occurrence: CN)
  Receive Date: 20240607
  Receipt Date: 20240607
  Transmission Date: 20240716
  Serious: Yes (Hospitalization, Other)
  Sender: FDA-Public Use
  Company Number: CN-SA-SAC20240604000513

PATIENT
  Age: 36 Year
  Sex: Male
  Weight: 70 kg

DRUGS (1)
  1. ENOXAPARIN SODIUM [Suspect]
     Active Substance: ENOXAPARIN SODIUM
     Indication: Hypercoagulation
     Dosage: 0.4 ML, QD
     Route: 058
     Dates: start: 20240521, end: 20240526

REACTIONS (8)
  - Conjunctival hyperaemia [Recovering/Resolving]
  - Pulmonary alveolar haemorrhage [Recovering/Resolving]
  - Haemoptysis [Recovering/Resolving]
  - Aspiration [Recovering/Resolving]
  - Pulmonary congestion [Recovering/Resolving]
  - Bronchial oedema [Recovering/Resolving]
  - Haemorrhage urinary tract [Recovering/Resolving]
  - Haematuria [Recovering/Resolving]

NARRATIVE: CASE EVENT DATE: 20240526
